FAERS Safety Report 6462615-9 (Version None)
Quarter: 2009Q4

REPORT INFORMATION
  Report Type: 
  Country: None (occurrence: None)
  Receive Date: 20091130
  Receipt Date: 20091117
  Transmission Date: 20100525
  Serious: Yes (Hospitalization)
  Sender: FDA-Public Use
  Company Number: US-ASTRAZENECA-2009SE26969

PATIENT
  Age: 44 Year
  Sex: Male

DRUGS (6)
  1. SEROQUEL [Suspect]
     Indication: SCHIZOPHRENIA, PARANOID TYPE
     Route: 048
     Dates: end: 20091001
  2. SEROQUEL [Suspect]
     Route: 048
  3. HALDOL [Concomitant]
  4. ATIVAN [Concomitant]
  5. SENNA [Concomitant]
  6. DOCUSATE [Concomitant]

REACTIONS (2)
  - MUSCULOSKELETAL DISCOMFORT [None]
  - PSYCHOTIC DISORDER [None]
